FAERS Safety Report 6939983-4 (Version None)
Quarter: 2010Q3

REPORT INFORMATION
  Report Type: 
  Country: None (occurrence: None)
  Receive Date: 20100825
  Receipt Date: 20100823
  Transmission Date: 20110219
  Serious: Yes (Life-Threatening, Hospitalization)
  Sender: FDA-Public Use
  Company Number: GB-JNJFOC-20100507932

PATIENT
  Age: 45 Year
  Sex: Female

DRUGS (8)
  1. HALOPERIDOL [Suspect]
     Indication: PSYCHOTIC DISORDER
     Route: 048
  2. HALOPERIDOL [Suspect]
     Indication: AGITATION
     Route: 048
  3. HALOPERIDOL [Suspect]
     Route: 030
  4. HALOPERIDOL [Suspect]
     Route: 030
  5. OLANZAPINE [Suspect]
     Indication: PSYCHOTIC DISORDER
     Route: 048
  6. CITALOPRAM HYDROBROMIDE [Concomitant]
     Indication: PRODUCT USED FOR UNKNOWN INDICATION
     Route: 065
  7. LORAZEPAM [Concomitant]
     Indication: PRODUCT USED FOR UNKNOWN INDICATION
     Route: 065
  8. QUETIAPINE [Concomitant]
     Indication: PRODUCT USED FOR UNKNOWN INDICATION
     Route: 065

REACTIONS (5)
  - BLOOD CREATININE INCREASED [None]
  - INFECTION [None]
  - LABILE BLOOD PRESSURE [None]
  - NEUROLEPTIC MALIGNANT SYNDROME [None]
  - PYREXIA [None]
